FAERS Safety Report 22643287 (Version 1)
Quarter: 2023Q2

REPORT INFORMATION
  Report Type: Other
  Country: BR (occurrence: None)
  Receive Date: 20230627
  Receipt Date: 20230627
  Transmission Date: 20230721
  Serious: Yes (Other)
  Sender: FDA-Public Use
  Company Number: BR-ROCHE-3375553

PATIENT
  Age: 47 Year
  Sex: Female

DRUGS (14)
  1. RITUXIMAB [Suspect]
     Active Substance: RITUXIMAB
     Indication: Myelitis transverse
     Dosage: TWO 1 G INFUSIONS SEPARATED BY A 2-WEEK INTERVAL, FOLLOWED BY A 1 G INFUSION EVERY 6 MONTHS
     Route: 042
  2. RITUXIMAB [Suspect]
     Active Substance: RITUXIMAB
     Route: 042
  3. MYCOPHENOLATE MOFETIL [Suspect]
     Active Substance: MYCOPHENOLATE MOFETIL
     Indication: Systemic lupus erythematosus
     Dosage: MAINTENANCE DOSE
     Route: 065
  4. HYDROXYCHLOROQUINE [Suspect]
     Active Substance: HYDROXYCHLOROQUINE
     Indication: Systemic lupus erythematosus
     Route: 065
  5. METHYLPREDNISOLONE [Suspect]
     Active Substance: METHYLPREDNISOLONE
     Indication: Systemic lupus erythematosus
     Route: 042
  6. CEFTRIAXONE [Concomitant]
     Active Substance: CEFTRIAXONE
     Indication: Prophylaxis
     Route: 048
  7. AMPICILLIN [Concomitant]
     Active Substance: AMPICILLIN
     Indication: Prophylaxis
  8. ACYCLOVIR [Concomitant]
     Active Substance: ACYCLOVIR
     Indication: Prophylaxis
  9. RIFAMPIN [Concomitant]
     Active Substance: RIFAMPIN
     Indication: Prophylaxis
  10. ISONIAZID [Concomitant]
     Active Substance: ISONIAZID
     Indication: Prophylaxis
  11. PYRAZINAMIDE [Concomitant]
     Active Substance: PYRAZINAMIDE
     Indication: Prophylaxis
  12. ETHAMBUTOL [Concomitant]
     Active Substance: ETHAMBUTOL HYDROCHLORIDE
     Indication: Prophylaxis
  13. PREDNISONE [Concomitant]
     Active Substance: PREDNISONE
     Route: 048
  14. PREDNISONE [Concomitant]
     Active Substance: PREDNISONE
     Route: 048

REACTIONS (2)
  - Encephalitis brain stem [Unknown]
  - Off label use [Unknown]
